FAERS Safety Report 10421146 (Version 2)
Quarter: 2014Q3

REPORT INFORMATION
  Report Type: Spontaneous
  Country: GB (occurrence: GB)
  Receive Date: 20140830
  Receipt Date: 20140830
  Transmission Date: 20150326
  Serious: Yes (Hospitalization, Other)
  Sender: FDA-Public Use
  Company Number: GB-AUROBINDO-AUR-APL-2014-08818

PATIENT
  Age: 75 Year
  Sex: Male

DRUGS (3)
  1. SPIRONOLACTONE. [Suspect]
     Active Substance: SPIRONOLACTONE
     Indication: CARDIAC FAILURE
     Dosage: 25 MG, ONCE A DAY
     Route: 048
     Dates: end: 20120928
  2. BISOPROLOL 5 MG [Suspect]
     Active Substance: BISOPROLOL
     Indication: CARDIAC FAILURE
     Dosage: 5 MG, ONCE A DAY
     Route: 048
     Dates: end: 20120928
  3. RAMIPRIL 5MG (RAMIPRIL) UNKNOWN, 5MG [Suspect]
     Active Substance: RAMIPRIL
     Indication: CARDIAC FAILURE
     Dosage: 5 MG, ONCE A DAY
     Route: 048
     Dates: end: 20120928

REACTIONS (4)
  - Medication error [Unknown]
  - Liver function test abnormal [Unknown]
  - Renal failure acute [Recovered/Resolved]
  - Hypotension [Recovered/Resolved]

NARRATIVE: CASE EVENT DATE: 20120928
